FAERS Safety Report 23639435 (Version 4)
Quarter: 2024Q2

REPORT INFORMATION
  Report Type: Spontaneous
  Country: SK (occurrence: SK)
  Receive Date: 20240316
  Receipt Date: 20240424
  Transmission Date: 20240716
  Serious: Yes (Death, Other)
  Sender: FDA-Public Use
  Company Number: SK-002147023-NVSC2024SK054240

PATIENT
  Age: 45 Year
  Sex: Female

DRUGS (5)
  1. KISQALI [Suspect]
     Active Substance: RIBOCICLIB
     Indication: Breast cancer
     Dosage: 600 MG
     Route: 065
     Dates: start: 20200709, end: 20200806
  2. KISQALI [Suspect]
     Active Substance: RIBOCICLIB
     Dosage: 400 MG, QD (ONCE DAILY FOR 21 CONSECUTIVE DAYS FOLLOWED BY 7 DAYS OFF TREATMENT)
     Route: 065
     Dates: start: 20200813, end: 2021
  3. LETROZOLE [Concomitant]
     Active Substance: LETROZOLE
     Indication: Breast cancer
     Dosage: 2.5 MG, QD
     Route: 048
     Dates: start: 20200701
  4. EXEMESTANE [Concomitant]
     Active Substance: EXEMESTANE
     Indication: Product used for unknown indication
     Dosage: UNK
     Route: 065
     Dates: start: 202110
  5. EVEROLIMUS [Concomitant]
     Active Substance: EVEROLIMUS
     Indication: Product used for unknown indication
     Dosage: UNK
     Route: 065
     Dates: start: 202110

REACTIONS (10)
  - Death [Fatal]
  - Malignant neoplasm progression [Not Recovered/Not Resolved]
  - Breast cancer [Not Recovered/Not Resolved]
  - Neutropenia [Unknown]
  - Hippocampal sclerosis [Unknown]
  - Tumour marker increased [Unknown]
  - Ascites [Unknown]
  - Metastases to bone [Unknown]
  - Asthenia [Recovering/Resolving]
  - Anaemia [Unknown]

NARRATIVE: CASE EVENT DATE: 20200701
